FAERS Safety Report 23565174 (Version 1)
Quarter: 2024Q1

REPORT INFORMATION
  Report Type: Spontaneous
  Country: US (occurrence: US)
  Receive Date: 20240226
  Receipt Date: 20240226
  Transmission Date: 20240409
  Serious: No
  Sender: FDA-Public Use
  Company Number: US-PFIZER INC-PV202400024703

PATIENT
  Age: 56 Year
  Sex: Female

DRUGS (2)
  1. IBRANCE [Suspect]
     Active Substance: PALBOCICLIB
     Dosage: TAKE 1 CAPSULE (125 MG) DAILY FOR 21 DAYS ON, AND 7 DAYS OFF (EVERY 28 DAYS)
     Route: 048
  2. ANASTROZOLE [Suspect]
     Active Substance: ANASTROZOLE
     Dosage: 1 MG
     Route: 048
     Dates: start: 20220428

REACTIONS (6)
  - Anxiety [Unknown]
  - Libido decreased [Unknown]
  - Dyspareunia [Unknown]
  - Neoplasm progression [Unknown]
  - Haemoglobin decreased [Unknown]
  - White blood cell count decreased [Unknown]

NARRATIVE: CASE EVENT DATE: 20240206
